FAERS Safety Report 10368534 (Version 1)
Quarter: 2014Q3

REPORT INFORMATION
  Report Type: Spontaneous
  Country: US (occurrence: US)
  Receive Date: 20140807
  Receipt Date: 20140807
  Transmission Date: 20150326
  Serious: Yes (Hospitalization)
  Sender: FDA-Public Use
  Company Number: US-BAYER-2014-116302

PATIENT
  Age: 18 Year
  Sex: Female
  Weight: 54.42 kg

DRUGS (18)
  1. MERCAPTOPURINE. [Concomitant]
     Active Substance: MERCAPTOPURINE
     Dosage: 50 MG, TAKING 75 MG A DAY
     Dates: start: 20100825
  2. ZOFRAN [Concomitant]
     Active Substance: ONDANSETRON HYDROCHLORIDE
     Dosage: UNK UNK, PRN
  3. HUMIRA [Concomitant]
     Active Substance: ADALIMUMAB
     Dosage: 40MG/0.08ML  WEEKLY
     Route: 058
  4. PEPCID [Concomitant]
     Active Substance: FAMOTIDINE
     Dosage: 1 DAILY AS PRN
     Dates: start: 20100713
  5. ZYVOX [Concomitant]
     Active Substance: LINEZOLID
     Dosage: 600 MG, BID FOR 7DAYS
  6. LISINOPRIL. [Concomitant]
     Active Substance: LISINOPRIL
  7. YAZ [Suspect]
     Active Substance: DROSPIRENONE\ETHINYL ESTRADIOL
  8. DILAUDID [Concomitant]
     Active Substance: HYDROMORPHONE HYDROCHLORIDE
     Dosage: UNK UNK, PRN
  9. COREG [Concomitant]
     Active Substance: CARVEDILOL
     Dosage: 6.25 MG, BID
  10. YASMIN [Suspect]
     Active Substance: DROSPIRENONE\ETHINYL ESTRADIOL
  11. PRILOSEC [Concomitant]
     Active Substance: OMEPRAZOLE MAGNESIUM
     Dosage: 20 MG, QD
     Dates: start: 20100825
  12. LEVAQUIN [Concomitant]
     Active Substance: LEVOFLOXACIN
     Route: 042
  13. NYSTOP [Concomitant]
     Active Substance: NYSTATIN
     Indication: CANDIDA INFECTION
     Dosage: 15 MG, UNK
     Route: 061
  14. PRINIVIL [Concomitant]
     Active Substance: LISINOPRIL
     Dosage: 10 MG, QD
  15. PROPOXYPHENE [Concomitant]
     Active Substance: PROPOXYPHENE
     Indication: PAIN
     Dosage: 100-650 MG
     Dates: start: 20100713
  16. ZANAFLEX [Concomitant]
     Active Substance: TIZANIDINE HYDROCHLORIDE
     Indication: MUSCLE SPASMS
     Dosage: 4 MG, HALF TO ONE TABLET EVERY 8 HOURS
     Dates: start: 20100825
  17. FLAGYL [Concomitant]
     Active Substance: METRONIDAZOLE\METRONIDAZOLE HYDROCHLORIDE
     Route: 042
  18. IMODIUM [Concomitant]
     Active Substance: LOPERAMIDE HYDROCHLORIDE
     Dosage: 2 MG, QD

REACTIONS (2)
  - Deep vein thrombosis [None]
  - Pulmonary embolism [None]

NARRATIVE: CASE EVENT DATE: 20100902
